FAERS Safety Report 4893119-2 (Version None)
Quarter: 2005Q4

REPORT INFORMATION
  Report Type: 
  Country: None (occurrence: None)
  Receive Date: 20051223
  Receipt Date: 20041214
  Transmission Date: 20060501
  Serious: Yes (Hospitalization)
  Sender: FDA-Public Use
  Company Number: PHEH2004US13295

PATIENT
  Age: 59 Year
  Sex: Male

DRUGS (8)
  1. CLOZARIL [Suspect]
     Indication: SCHIZOPHRENIA
     Dosage: 100 MG, BID, ORAL
     Route: 048
     Dates: end: 20041214
  2. NAMENDA [Suspect]
  3. ABILIFY [Concomitant]
  4. ZYPREXA [Concomitant]
  5. HALDOL [Concomitant]
  6. HALOPERIDOL [Concomitant]
  7. RESTORIL [Concomitant]
  8. ATIVAN [Concomitant]

REACTIONS (7)
  - CARCINOEMBRYONIC ANTIGEN INCREASED [None]
  - HAEMATOCRIT DECREASED [None]
  - HAEMOGLOBIN DECREASED [None]
  - PLATELET COUNT DECREASED [None]
  - PSYCHOTIC DISORDER [None]
  - RED BLOOD CELL COUNT DECREASED [None]
  - WHITE BLOOD CELL COUNT DECREASED [None]
